FAERS Safety Report 9347895 (Version 1)
Quarter: 2013Q2

REPORT INFORMATION
  Report Type: Spontaneous
  Country: US (occurrence: US)
  Receive Date: 20130614
  Receipt Date: 20130614
  Transmission Date: 20140414
  Serious: Yes (Other)
  Sender: FDA-Public Use
  Company Number: US-RB-054942-13

PATIENT
  Age: 9 Year
  Sex: Male

DRUGS (4)
  1. MUCINEX CHILDREN COLD + FEVER VERY BERRY LIQUID (ACETAMINOPHEN) [Suspect]
     Indication: PRODUCT USED FOR UNKNOWN INDICATION
     Dosage: STOPPED ON 31-MAY-2013.
     Route: 048
     Dates: start: 20130531
  2. MUCINEX CHILDREN COLD + FEVER VERY BERRY LIQUID [Suspect]
  3. MUCINEX CHILDREN COLD + FEVER VERY BERRY LIQUID (GUAIFENESIN) [Suspect]
  4. MUCINEX CHILDREN COLD + FEVER VERY BERRY LIQUID [Suspect]

REACTIONS (2)
  - Hallucination, visual [Unknown]
  - Overdose [Unknown]
